FAERS Safety Report 23481925 (Version 2)
Quarter: 2024Q1

REPORT INFORMATION
  Report Type: Spontaneous
  Country: US (occurrence: US)
  Receive Date: 20240205
  Receipt Date: 20240209
  Transmission Date: 20240409
  Serious: Yes (Death)
  Sender: FDA-Public Use
  Company Number: US-SERVIER-S24000985

PATIENT

DRUGS (1)
  1. TIBSOVO [Suspect]
     Active Substance: IVOSIDENIB
     Indication: Acute myeloid leukaemia
     Dosage: UNK
     Route: 048

REACTIONS (3)
  - Myeloblast count increased [Fatal]
  - Lymphocytic infiltration [Fatal]
  - Differentiation syndrome [Fatal]

NARRATIVE: CASE EVENT DATE: 20240101
